FAERS Safety Report 19263807 (Version 1)
Quarter: 2021Q2

REPORT INFORMATION
  Report Type: Spontaneous
  Country: IE (occurrence: IE)
  Receive Date: 20210517
  Receipt Date: 20210517
  Transmission Date: 20210717
  Serious: Yes (Other)
  Sender: FDA-Public Use
  Company Number: IE-TEVA-2021-IE-1912159

PATIENT
  Age: 29 Year
  Sex: Male

DRUGS (6)
  1. ETOPOSIDE. [Suspect]
     Active Substance: ETOPOSIDE
     Indication: TESTICULAR YOLK SAC TUMOUR
     Dosage: ON DAY 1?5
     Route: 042
  2. CISPLATIN. [Suspect]
     Active Substance: CISPLATIN
     Dosage: ON DAY 1?5
     Route: 042
  3. CISPLATIN. [Suspect]
     Active Substance: CISPLATIN
     Indication: TESTICULAR YOLK SAC TUMOUR
     Route: 065
  4. PACLITAXEL. [Suspect]
     Active Substance: PACLITAXEL
     Indication: TESTICULAR YOLK SAC TUMOUR
     Route: 065
  5. IFOSFAMIDE. [Suspect]
     Active Substance: IFOSFAMIDE
     Indication: TESTICULAR YOLK SAC TUMOUR
     Route: 065
  6. BLEOMYCIN [Suspect]
     Active Substance: BLEOMYCIN SULFATE
     Indication: TESTICULAR YOLK SAC TUMOUR
     Dosage: ON DAY 1, 8 AND 15
     Route: 042

REACTIONS (1)
  - Neutropenic sepsis [Unknown]
